FAERS Safety Report 7819608-6 (Version None)
Quarter: 2011Q4

REPORT INFORMATION
  Report Type: 
  Country: None (occurrence: None)
  Receive Date: 20111018
  Receipt Date: 20111018
  Transmission Date: 20120403
  Serious: Yes (Disabling, Other)
  Sender: FDA-Public Use
  Company Number: None

PATIENT
  Age: 24 Year
  Sex: Male
  Weight: 68.038 kg

DRUGS (1)
  1. ZITHROMAX [Suspect]
     Indication: UPPER RESPIRATORY TRACT INFECTION
     Dates: start: 20110921, end: 20110923

REACTIONS (8)
  - OEDEMA PERIPHERAL [None]
  - TENDON DISORDER [None]
  - MUSCULOSKELETAL DISORDER [None]
  - HYPERSENSITIVITY [None]
  - PAIN [None]
  - TENDON PAIN [None]
  - ABASIA [None]
  - MUSCLE SPASMS [None]
